FAERS Safety Report 5051308-0 (Version None)
Quarter: 2006Q3

REPORT INFORMATION
  Report Type: 
  Country: None (occurrence: None)
  Receive Date: 20060714
  Receipt Date: 20060703
  Transmission Date: 20061208
  Serious: Yes (Death)
  Sender: FDA-Public Use
  Company Number: ES-JNJFOC-20060600745

PATIENT
  Age: 65 Year
  Sex: Male

DRUGS (12)
  1. LEVOFLOXACIN [Suspect]
     Indication: CHRONIC OBSTRUCTIVE PULMONARY DISEASE
     Route: 048
  2. OXYGEN [Concomitant]
  3. METHYLPREDNISOLONE [Concomitant]
  4. PREDNISONE [Concomitant]
  5. SALBUTAMOL [Concomitant]
  6. IPRATROPIUM BROMIDE [Concomitant]
  7. FUROSEMIDE [Concomitant]
  8. OMEPRAZOLE [Concomitant]
  9. PAROXETINE HCL [Concomitant]
  10. ACETYLCYSTEINE [Concomitant]
  11. THEOPHYLLINE [Concomitant]
  12. ENALAPRIL MALEATE [Concomitant]

REACTIONS (7)
  - CHEST INJURY [None]
  - FALL [None]
  - PNEUMOTHORAX [None]
  - RESPIRATORY FAILURE [None]
  - RIB FRACTURE [None]
  - SUBCUTANEOUS EMPHYSEMA [None]
  - TENDON RUPTURE [None]
